FAERS Safety Report 4773457-4 (Version None)
Quarter: 2005Q3

REPORT INFORMATION
  Report Type: 
  Country: None (occurrence: None)
  Receive Date: 20050920
  Receipt Date: 20050906
  Transmission Date: 20060218
  Serious: Yes (Hospitalization, Other)
  Sender: FDA-Public Use
  Company Number: CH-JNJFOC-20050800289

PATIENT
  Sex: Female

DRUGS (2)
  1. CAELYX [Suspect]
     Dosage: 50 MG/M2 X11 CYCLES
     Route: 050
  2. ANTIHYPERTENSIVE AGENT [Concomitant]
     Indication: HYPERTENSION

REACTIONS (1)
  - HAEMOLYTIC URAEMIC SYNDROME [None]
